FAERS Safety Report 8519343 (Version 2)
Quarter: 2014Q2

REPORT INFORMATION
  Report Type: Spontaneous
  Country: US (occurrence: US)
  Receive Date: 20120418
  Receipt Date: 20140404
  Transmission Date: 20141212
  Serious: Yes (Other)
  Sender: FDA-Public Use
  Company Number: US-BAYER-2012-035977

PATIENT
  Age: 34 Year
  Sex: Female
  Weight: 79.37 kg

DRUGS (1)
  1. MIRENA [Suspect]
     Indication: CONTRACEPTION
     Dosage: UNK
     Dates: start: 20090615, end: 20100623

REACTIONS (11)
  - Uterine perforation [None]
  - Discomfort [None]
  - Menorrhagia [None]
  - Injury [None]
  - Back pain [None]
  - Pelvic pain [None]
  - Vaginal discharge [None]
  - Anhedonia [None]
  - Quality of life decreased [None]
  - Emotional distress [None]
  - Device issue [None]
